FAERS Safety Report 23652134 (Version 1)
Quarter: 2024Q1

REPORT INFORMATION
  Report Type: Spontaneous
  Country: US (occurrence: US)
  Receive Date: 20240320
  Receipt Date: 20240320
  Transmission Date: 20240410
  Serious: Yes (Other)
  Sender: FDA-Public Use
  Company Number: US-ALKEM LABORATORIES LIMITED-US-ALKEM-2023-16559

PATIENT
  Age: 25 Year
  Sex: Male

DRUGS (4)
  1. EVEROLIMUS [Suspect]
     Active Substance: EVEROLIMUS
     Indication: Neurofibromatosis
     Dosage: 10 MG/DAY
     Route: 065
  2. EVEROLIMUS [Suspect]
     Active Substance: EVEROLIMUS
     Indication: Acoustic neuroma
  3. SELUMETINIB [Suspect]
     Active Substance: SELUMETINIB
     Indication: Neurofibromatosis
     Dosage: 25 MILLIGRAM/KILOGRAM, BID
     Route: 065
  4. SELUMETINIB [Suspect]
     Active Substance: SELUMETINIB
     Indication: Acoustic neuroma
     Dosage: 25 MILLIGRAM/KILOGRAM, BID (RESTARTED DOSE)
     Route: 065

REACTIONS (2)
  - Rash maculo-papular [Unknown]
  - Stomatitis [Unknown]
